FAERS Safety Report 6055871-2 (Version None)
Quarter: 2009Q1

REPORT INFORMATION
  Report Type: 
  Country: None (occurrence: None)
  Receive Date: 20090126
  Receipt Date: 20090114
  Transmission Date: 20090719
  Serious: Yes (Death)
  Sender: FDA-Public Use
  Company Number: 2009US000097

PATIENT
  Age: 23 Year
  Sex: Male

DRUGS (6)
  1. PROGRAF [Suspect]
     Indication: RENAL TRANSPLANT
     Dosage: 6 MG, UID/QD, ORAL
     Route: 048
     Dates: start: 20070626
  2. PREDNISOLONE [Concomitant]
  3. MYCOPHENOLATE MOFETIL [Concomitant]
  4. ENALAPRIL MALEATE [Concomitant]
  5. LOVASTATIN [Concomitant]
  6. AMLODIPINE [Concomitant]

REACTIONS (1)
  - BRONCHOPNEUMONIA [None]
